FAERS Safety Report 11661752 (Version 1)
Quarter: 2015Q4

REPORT INFORMATION
  Report Type: Spontaneous
  Country: JP (occurrence: JP)
  Receive Date: 20151026
  Receipt Date: 20151026
  Transmission Date: 20160304
  Serious: Yes (Death, Other)
  Sender: FDA-Public Use
  Company Number: PHJP1997JP004759

PATIENT
  Age: 52 Year
  Sex: Male

DRUGS (3)
  1. IFOMIDE [Concomitant]
     Active Substance: IFOSFAMIDE
     Dosage: UNK UKN, UNK
     Route: 065
     Dates: start: 199701
  2. VOLTAREN [Suspect]
     Active Substance: DICLOFENAC SODIUM
     Indication: ANALGESIC THERAPY
     Dosage: 50 MG, QD
     Dates: start: 199610
  3. CAMPTO [Concomitant]
     Active Substance: IRINOTECAN
     Indication: LUNG NEOPLASM MALIGNANT
     Dosage: UNK UKN, UNK
     Route: 065
     Dates: start: 199612

REACTIONS (2)
  - Respiratory failure [Fatal]
  - Interstitial lung disease [Unknown]

NARRATIVE: CASE EVENT DATE: 19970113
